FAERS Safety Report 17383398 (Version 1)
Quarter: 2020Q1

REPORT INFORMATION
  Report Type: Spontaneous
  Country: US (occurrence: US)
  Receive Date: 20200206
  Receipt Date: 20200206
  Transmission Date: 20200409
  Serious: Yes (Other)
  Sender: FDA-Public Use
  Company Number: US-ABBVIE-19K-163-2825446-00

PATIENT
  Age: 57 Year
  Sex: Female
  Weight: 121.67 kg

DRUGS (8)
  1. REMICADE [Suspect]
     Active Substance: INFLIXIMAB
     Indication: SARCOIDOSIS
     Route: 065
     Dates: start: 20190523
  2. PREDNISONE. [Concomitant]
     Active Substance: PREDNISONE
     Indication: SARCOIDOSIS
  3. REMICADE [Suspect]
     Active Substance: INFLIXIMAB
     Route: 065
     Dates: start: 20190626
  4. SIMPONI ARIA [Suspect]
     Active Substance: GOLIMUMAB
     Route: 065
     Dates: start: 20181213
  5. HUMIRA [Suspect]
     Active Substance: ADALIMUMAB
     Indication: SARCOIDOSIS
     Route: 058
     Dates: start: 2019
  6. SIMPONI ARIA [Suspect]
     Active Substance: GOLIMUMAB
     Indication: SARCOIDOSIS
     Route: 065
     Dates: start: 20180513
  7. HUMIRA [Suspect]
     Active Substance: ADALIMUMAB
     Indication: SARCOIDOSIS
     Route: 058
     Dates: start: 20181019, end: 201905
  8. SIMPONI ARIA [Suspect]
     Active Substance: GOLIMUMAB
     Route: 065
     Dates: start: 20181115

REACTIONS (9)
  - Injection site erythema [Recovered/Resolved]
  - Pain in extremity [Recovered/Resolved]
  - Off label use [Not Recovered/Not Resolved]
  - Injection site pruritus [Recovered/Resolved]
  - Skin discolouration [Recovered/Resolved]
  - Lupus-like syndrome [Not Recovered/Not Resolved]
  - Peripheral swelling [Recovered/Resolved]
  - Drug specific antibody present [Not Recovered/Not Resolved]
  - Injection site papule [Recovered/Resolved]

NARRATIVE: CASE EVENT DATE: 20181115
